FAERS Safety Report 6145641-9 (Version None)
Quarter: 2009Q2

REPORT INFORMATION
  Report Type: 
  Country: None (occurrence: None)
  Receive Date: 20090407
  Receipt Date: 20090330
  Transmission Date: 20091009
  Serious: Yes (Other)
  Sender: FDA-Public Use
  Company Number: FR-JNJFOC-20090307344

PATIENT
  Age: 26 Year
  Sex: Male

DRUGS (3)
  1. TAVANIC [Suspect]
     Indication: PNEUMONIA LEGIONELLA
     Route: 048
  2. ROVAMYCIN [Concomitant]
     Indication: PNEUMONIA LEGIONELLA
     Route: 042
  3. CEFTRIAXONE [Concomitant]
     Indication: PNEUMONIA LEGIONELLA
     Route: 042

REACTIONS (3)
  - CHOLESTASIS [None]
  - CYTOLYTIC HEPATITIS [None]
  - INCORRECT DOSE ADMINISTERED [None]
